FAERS Safety Report 25873220 (Version 2)
Quarter: 2025Q4

REPORT INFORMATION
  Report Type: Report from Study
  Country: EU (occurrence: EU)
  Receive Date: 20251002
  Receipt Date: 20251029
  Transmission Date: 20260117
  Serious: No
  Sender: EXELIXIS
  Company Number: EU-IPSEN Group, Research and Development-2025-23654

PATIENT

DRUGS (24)
  1. CABOZANTINIB [Suspect]
     Active Substance: CABOZANTINIB
     Indication: Renal cell carcinoma
     Dosage: 40 MG, QD
     Route: 048
     Dates: start: 20231031, end: 20231127
  2. CABOZANTINIB [Suspect]
     Active Substance: CABOZANTINIB
     Dosage: 40 MG, QD
     Route: 048
     Dates: start: 20231212, end: 20240226
  3. CABOZANTINIB [Suspect]
     Active Substance: CABOZANTINIB
     Dosage: 20 MG, QD
     Route: 048
     Dates: start: 20240227, end: 20240919
  4. NIVOLUMAB [Suspect]
     Active Substance: NIVOLUMAB
     Indication: Renal cell carcinoma
     Dosage: 240 MG, QD
     Route: 042
     Dates: start: 20231031
  5. NIVOLUMAB [Suspect]
     Active Substance: NIVOLUMAB
     Dosage: 240 MG, QD
     Route: 042
     Dates: start: 20231114
  6. NIVOLUMAB [Suspect]
     Active Substance: NIVOLUMAB
     Dosage: 240 MG, QD
     Route: 042
     Dates: start: 20231128
  7. NIVOLUMAB [Suspect]
     Active Substance: NIVOLUMAB
     Dosage: 240 MG, QD
     Route: 042
     Dates: start: 20231212
  8. NIVOLUMAB [Suspect]
     Active Substance: NIVOLUMAB
     Dosage: 240 MG, QD
     Route: 042
     Dates: start: 20231226
  9. NIVOLUMAB [Suspect]
     Active Substance: NIVOLUMAB
     Dosage: 240 MG, QD
     Route: 042
     Dates: start: 20240111
  10. NIVOLUMAB [Suspect]
     Active Substance: NIVOLUMAB
     Dosage: 240 MG, QD
     Route: 042
     Dates: start: 20240126
  11. NIVOLUMAB [Suspect]
     Active Substance: NIVOLUMAB
     Dosage: 240 MG, QD
     Route: 042
     Dates: start: 20240209
  12. NIVOLUMAB [Suspect]
     Active Substance: NIVOLUMAB
     Dosage: 240 MG, QD
     Route: 042
     Dates: start: 20240227
  13. NIVOLUMAB [Suspect]
     Active Substance: NIVOLUMAB
     Dosage: 240 MG, QD
     Route: 042
     Dates: start: 20240312
  14. NIVOLUMAB [Suspect]
     Active Substance: NIVOLUMAB
     Dosage: 480 MG, QD
     Route: 042
     Dates: start: 20240326
  15. NIVOLUMAB [Suspect]
     Active Substance: NIVOLUMAB
     Dosage: 480 MG, QD
     Route: 042
     Dates: start: 20240425
  16. NIVOLUMAB [Suspect]
     Active Substance: NIVOLUMAB
     Dosage: 480 MG, QD
     Route: 042
     Dates: start: 20240523
  17. NIVOLUMAB [Suspect]
     Active Substance: NIVOLUMAB
     Dosage: 480 MG, QD
     Route: 042
     Dates: start: 20240620
  18. NIVOLUMAB [Suspect]
     Active Substance: NIVOLUMAB
     Dosage: 480 MG, QD
     Route: 042
     Dates: start: 20240724
  19. NIVOLUMAB [Suspect]
     Active Substance: NIVOLUMAB
     Dosage: 480 MG, QD
     Route: 042
     Dates: start: 20240822
  20. METFORMIN HYDROCHLORIDE [Concomitant]
     Active Substance: METFORMIN HYDROCHLORIDE
     Indication: Type 1 diabetes mellitus
     Dosage: UNK
     Route: 048
     Dates: start: 2013
  21. DAPAGLIFLOZIN [Concomitant]
     Active Substance: DAPAGLIFLOZIN
     Indication: Type 1 diabetes mellitus
     Dosage: UNK
     Route: 048
     Dates: start: 2022
  22. SOTALOL HYDROCHLORIDE [Concomitant]
     Active Substance: SOTALOL HYDROCHLORIDE
     Indication: Type 1 diabetes mellitus
     Dosage: UNK
     Route: 048
     Dates: start: 2013
  23. REPAGLINIDE [Concomitant]
     Active Substance: REPAGLINIDE
     Indication: Type 1 diabetes mellitus
     Dosage: UNK
     Route: 048
     Dates: start: 2013
  24. ELIQUIS [Concomitant]
     Active Substance: APIXABAN
     Indication: Anticoagulant therapy
     Dosage: UNK
     Route: 048

REACTIONS (1)
  - Cholecystitis [Recovered/Resolved]

NARRATIVE: CASE EVENT DATE: 20241101
